FAERS Safety Report 5622496-X (Version None)
Quarter: 2008Q1

REPORT INFORMATION
  Report Type: 
  Country: None (occurrence: None)
  Receive Date: 20080211
  Receipt Date: 20080204
  Transmission Date: 20080703
  Serious: Yes (Hospitalization)
  Sender: FDA-Public Use
  Company Number: DE-MERCK-0802DEU00008

PATIENT
  Age: 64 Year
  Sex: Female
  Weight: 82 kg

DRUGS (6)
  1. JANUVIA [Suspect]
     Indication: TYPE 2 DIABETES MELLITUS
     Route: 048
     Dates: end: 20080107
  2. FUROSEMIDE SODIUM [Concomitant]
     Indication: HYPERTENSION
     Route: 048
  3. FUROSEMIDE SODIUM [Concomitant]
     Indication: OEDEMA PERIPHERAL
     Route: 048
  4. GLYBURIDE [Concomitant]
     Route: 048
  5. ENALAPRIL MALEATE [Concomitant]
     Route: 048
  6. NEBIVOLOL HYDROCHLORIDE [Concomitant]
     Route: 048

REACTIONS (1)
  - PANCREATITIS [None]
